FAERS Safety Report 23106978 (Version 2)
Quarter: 2023Q4

REPORT INFORMATION
  Report Type: Spontaneous
  Country: ES (occurrence: ES)
  Receive Date: 20231026
  Receipt Date: 20231220
  Transmission Date: 20240110
  Serious: Yes (Other)
  Sender: FDA-Public Use
  Company Number: ES-PFIZER INC-202300323989

PATIENT
  Age: 72 Year
  Sex: Male

DRUGS (2)
  1. BISOPROLOL [Suspect]
     Active Substance: BISOPROLOL\BISOPROLOL FUMARATE
     Indication: Product used for unknown indication
     Dosage: UNK
     Route: 065
  2. COMIRNATY (TOZINAMERAN) [Suspect]
     Active Substance: TOZINAMERAN
     Indication: COVID-19 immunisation
     Dosage: UNK (TOTAL), DOSE 5 (BOOSTER), SINGLE
     Route: 065
     Dates: start: 202210, end: 202210

REACTIONS (4)
  - Arrhythmia [Unknown]
  - Atrial fibrillation [Unknown]
  - Ventricular tachycardia [Unknown]
  - Myocarditis [Unknown]
